FAERS Safety Report 19843736 (Version 16)
Quarter: 2023Q2

REPORT INFORMATION
  Report Type: Report from Study
  Country: US (occurrence: US)
  Receive Date: 20210917
  Receipt Date: 20230606
  Transmission Date: 20230722
  Serious: Yes (Hospitalization)
  Sender: FDA-Public Use
  Company Number: US-NOVARTISTESTPH-NVSC2021US205499

PATIENT
  Age: 47 Year
  Sex: Female
  Weight: 68.027 kg

DRUGS (9)
  1. TREPROSTINIL [Suspect]
     Active Substance: TREPROSTINIL
     Indication: Pulmonary arterial hypertension
     Dosage: 82 NG/KG/MIN, CONT
     Route: 058
     Dates: start: 20210820
  2. TREPROSTINIL [Suspect]
     Active Substance: TREPROSTINIL
     Dosage: 82 NG/KG/MIN, CONT
     Route: 058
  3. TREPROSTINIL [Suspect]
     Active Substance: TREPROSTINIL
     Dosage: 82 NG/KG/MIN, CONT
     Route: 058
  4. TREPROSTINIL [Suspect]
     Active Substance: TREPROSTINIL
     Dosage: 90 NG/KG/MIN, CONT
     Route: 058
  5. TREPROSTINIL [Suspect]
     Active Substance: TREPROSTINIL
     Dosage: 82 NG/KG/MIN, CONT
     Route: 058
  6. TREPROSTINIL [Suspect]
     Active Substance: TREPROSTINIL
     Dosage: 82 NG/KG/MIN, CONT
     Route: 058
  7. OPSUMIT [Suspect]
     Active Substance: MACITENTAN
     Indication: Product used for unknown indication
     Dosage: UNK
     Route: 065
  8. WARFARIN [Concomitant]
     Active Substance: WARFARIN
     Indication: Product used for unknown indication
     Dosage: UNK
     Route: 065
  9. REMODULIN [Concomitant]
     Active Substance: TREPROSTINIL
     Indication: Product used for unknown indication
     Dosage: UNK
     Route: 065

REACTIONS (12)
  - Sickle cell anaemia [Unknown]
  - Sickle cell anaemia with crisis [Unknown]
  - Anaemia [Unknown]
  - Pneumonia [Unknown]
  - Respiratory failure [Unknown]
  - COVID-19 [Unknown]
  - Dyspnoea [Unknown]
  - Pulmonary hypertension [Unknown]
  - Chest pain [Unknown]
  - Dizziness [Unknown]
  - Infusion site pain [Unknown]
  - Injection site irritation [Unknown]

NARRATIVE: CASE EVENT DATE: 20211102
